FAERS Safety Report 4303827-X (Version None)
Quarter: 2004Q1

REPORT INFORMATION
  Report Type: 
  Country: None (occurrence: None)
  Receive Date: 20040218
  Receipt Date: 20031211
  Transmission Date: 20041129
  Serious: Yes (Hospitalization, Other)
  Sender: FDA-Public Use
  Company Number: KII-2003-0007264

PATIENT
  Age: 36 Year
  Sex: Male

DRUGS (6)
  1. OXYCONTIN [Suspect]
  2. TRAMADOL (TRAMADOL) [Suspect]
  3. NALBUPHINE HCL [Suspect]
  4. BENZODIAZEPINE DERIVATIVES [Suspect]
  5. SILDENAFIL (SILDENAFIL) [Suspect]
  6. AMPHETAMINE SULFATE TAB [Suspect]

REACTIONS (13)
  - ALANINE AMINOTRANSFERASE INCREASED [None]
  - ASPARTATE AMINOTRANSFERASE INCREASED [None]
  - BLOOD CREATINE PHOSPHOKINASE INCREASED [None]
  - BLOOD PRESSURE SYSTOLIC INCREASED [None]
  - DIALYSIS [None]
  - LETHARGY [None]
  - MENTAL STATUS CHANGES [None]
  - MIOSIS [None]
  - MULTIPLE DRUG OVERDOSE [None]
  - PROTHROMBIN TIME PROLONGED [None]
  - RENAL FAILURE [None]
  - RHABDOMYOLYSIS [None]
  - SOMNOLENCE [None]
